FAERS Safety Report 10902988 (Version 1)
Quarter: 2015Q1

REPORT INFORMATION
  Report Type: Report from Study
  Country: US (occurrence: US)
  Receive Date: 20150310
  Receipt Date: 20150310
  Transmission Date: 20150721
  Serious: Yes (Other)
  Sender: FDA-Public Use
  Company Number: US-AMGEN-USASL2015020869

PATIENT
  Age: 56 Year
  Sex: Male

DRUGS (2)
  1. ENBREL [Suspect]
     Active Substance: ETANERCEPT
     Indication: PSORIATIC ARTHROPATHY
  2. ENBREL [Suspect]
     Active Substance: ETANERCEPT
     Indication: PSORIASIS
     Dosage: 50 MG, 2 TIMES/WK
     Route: 058
     Dates: start: 2005, end: 201503

REACTIONS (9)
  - Cellulitis [Unknown]
  - Erythema [Unknown]
  - Malaise [Unknown]
  - Sinusitis [Unknown]
  - Inhibitory drug interaction [Unknown]
  - Coronary arterial stent insertion [Unknown]
  - Blood cholesterol abnormal [Not Recovered/Not Resolved]
  - Staphylococcal infection [Unknown]
  - Precancerous cells present [Recovered/Resolved]

NARRATIVE: CASE EVENT DATE: 201210
